FAERS Safety Report 19002182 (Version 4)
Quarter: 2023Q1

REPORT INFORMATION
  Report Type: Other
  Country: US (occurrence: None)
  Receive Date: 20210312
  Receipt Date: 20230310
  Transmission Date: 20230418
  Serious: Yes (Hospitalization, Other)
  Sender: FDA-Public Use
  Company Number: US-ROCHE-2785428

PATIENT
  Age: 55 Year
  Sex: Female
  Weight: 80.812 kg

DRUGS (24)
  1. OCREVUS [Suspect]
     Active Substance: OCRELIZUMAB
     Indication: Relapsing-remitting multiple sclerosis
     Route: 042
     Dates: start: 20201022
  2. OCREVUS [Suspect]
     Active Substance: OCRELIZUMAB
     Indication: Relapsing multiple sclerosis
     Route: 042
  3. OCREVUS [Suspect]
     Active Substance: OCRELIZUMAB
     Route: 042
     Dates: start: 2019
  4. VALIUM [Suspect]
     Active Substance: DIAZEPAM
     Indication: Muscle spasms
     Route: 048
     Dates: start: 2019
  5. VALIUM [Suspect]
     Active Substance: DIAZEPAM
     Indication: Anxiety
  6. MODERNA COVID-19 VACCINE [Suspect]
     Active Substance: ELASOMERAN
     Indication: Product used for unknown indication
     Route: 065
     Dates: start: 20210814, end: 202110
  7. DALFAMPRIDINE [Concomitant]
     Active Substance: DALFAMPRIDINE
     Route: 048
  8. DITROPAN XL [Concomitant]
     Active Substance: OXYBUTYNIN CHLORIDE
     Indication: Incontinence
     Route: 048
  9. FLEXERIL [Concomitant]
     Active Substance: CYCLOBENZAPRINE HYDROCHLORIDE
     Indication: Back pain
     Dosage: TWICE A DAY AS NEEDED
     Route: 048
  10. NEXIUM [Concomitant]
     Active Substance: ESOMEPRAZOLE MAGNESIUM
     Indication: Gastrooesophageal reflux disease
     Route: 048
  11. NORCO [Concomitant]
     Active Substance: ACETAMINOPHEN\HYDROCODONE BITARTRATE
     Dosage: 10/325 EVERY 6 HOURS AS NEEDED
     Route: 048
  12. NORCO [Concomitant]
     Active Substance: ACETAMINOPHEN\HYDROCODONE BITARTRATE
     Dosage: 10/325 MG EVERY 4 HOURS SEVERE PAIN
     Route: 048
  13. ALBUTEROL [Concomitant]
     Active Substance: ALBUTEROL
     Indication: Asthma
     Dosage: 2 TIMES DAILY PRN
     Route: 055
  14. ESTER C (UNITED STATES) [Concomitant]
     Dosage: TAKES 3 X 1000 MG EVERY MORNING (3000 MG TOTAL)
     Route: 048
  15. ESTER C (UNITED STATES) [Concomitant]
     Route: 048
  16. BENADRYL [Concomitant]
     Active Substance: DIPHENHYDRAMINE HYDROCHLORIDE
     Indication: Premedication
  17. DITROPAN [Concomitant]
     Active Substance: OXYBUTYNIN CHLORIDE
     Indication: Incontinence
     Route: 048
  18. ULTRAM [Concomitant]
     Active Substance: TRAMADOL HYDROCHLORIDE
     Indication: Arthralgia
     Route: 048
     Dates: start: 202106
  19. SEA MOSS [Concomitant]
     Route: 048
     Dates: start: 2021
  20. VENTOLIN [Concomitant]
     Active Substance: ALBUTEROL SULFATE
     Indication: Asthma
     Route: 055
  21. ROCEPHIN [Concomitant]
     Active Substance: CEFTRIAXONE SODIUM
     Route: 042
     Dates: end: 20211019
  22. MEGASTROL [Concomitant]
  23. MACROBID [Concomitant]
     Active Substance: NITROFURANTOIN\NITROFURANTOIN MONOHYDRATE
  24. TECFIDERA [Concomitant]
     Active Substance: DIMETHYL FUMARATE
     Indication: Multiple sclerosis

REACTIONS (26)
  - Urinary tract infection [Not Recovered/Not Resolved]
  - Deafness [Unknown]
  - Gait disturbance [Recovering/Resolving]
  - Neuralgia [Not Recovered/Not Resolved]
  - Vulvovaginal injury [Unknown]
  - Vision blurred [Recovering/Resolving]
  - Diplopia [Recovering/Resolving]
  - Fall [Unknown]
  - Product prescribing error [Unknown]
  - Migraine [Recovered/Resolved]
  - Multiple sclerosis [Not Recovered/Not Resolved]
  - Lipoma [Recovering/Resolving]
  - Arthritis [Not Recovered/Not Resolved]
  - Asthenia [Unknown]
  - Anxiety [Not Recovered/Not Resolved]
  - Weight decreased [Recovering/Resolving]
  - Peripheral swelling [Recovered/Resolved]
  - Asthma [Recovered/Resolved]
  - Muscular weakness [Not Recovered/Not Resolved]
  - Dysstasia [Unknown]
  - Speech disorder [Unknown]
  - Impaired self-care [Unknown]
  - Onychomadesis [Recovering/Resolving]
  - Alopecia [Not Recovered/Not Resolved]
  - Vitamin D decreased [Not Recovered/Not Resolved]
  - COVID-19 [Recovered/Resolved]

NARRATIVE: CASE EVENT DATE: 20200101
